FAERS Safety Report 5377094-2 (Version None)
Quarter: 2007Q2

REPORT INFORMATION
  Report Type: 
  Country: None (occurrence: None)
  Receive Date: 20070628
  Receipt Date: 20070628
  Transmission Date: 20071010
  Serious: Yes (Hospitalization)
  Sender: FDA-Public Use
  Company Number: None

PATIENT
  Age: 71 Year
  Sex: Male

DRUGS (1)
  1. ATENOLOL [Suspect]
     Dosage: 50MG EVERY DAY PO
     Route: 048
     Dates: start: 20070402, end: 20070509

REACTIONS (1)
  - BRADYCARDIA [None]
